FAERS Safety Report 8267549-5 (Version None)
Quarter: 2012Q2

REPORT INFORMATION
  Report Type: 
  Country: None (occurrence: None)
  Receive Date: 20120404
  Receipt Date: 20120320
  Transmission Date: 20120825
  Serious: Yes (Hospitalization, Other)
  Sender: FDA-Public Use
  Company Number: FK201200915

PATIENT
  Age: 58 Year
  Sex: Female

DRUGS (3)
  1. PROCARBAZINE HYDROCHLORIDE [Concomitant]
  2. METHOTREXATE [Suspect]
     Indication: DIFFUSE LARGE B-CELL LYMPHOMA
  3. VINCRISTINE [Concomitant]

REACTIONS (5)
  - ATELECTASIS [None]
  - DYSPNOEA [None]
  - PYREXIA [None]
  - BRONCHOSPASM [None]
  - LUNG DISORDER [None]
